FAERS Safety Report 20548358 (Version 1)
Quarter: 2022Q1

REPORT INFORMATION
  Report Type: Spontaneous
  Country: US (occurrence: US)
  Receive Date: 20220303
  Receipt Date: 20220303
  Transmission Date: 20220423
  Serious: No
  Sender: FDA-Public Use
  Company Number: US-ALLERGAN-2105609US

PATIENT
  Sex: Female

DRUGS (4)
  1. RESTASIS [Suspect]
     Active Substance: CYCLOSPORINE
     Indication: Dry eye
     Dosage: 2 GTT, BID
     Route: 047
     Dates: end: 202101
  2. SYSTANE ULTRA [Concomitant]
     Active Substance: POLYETHYLENE GLYCOL 400\PROPYLENE GLYCOL
     Indication: Dry eye
     Dosage: UNK
     Route: 047
  3. XIIDRA [Concomitant]
     Active Substance: LIFITEGRAST
     Indication: Dry eye
  4. Lid scrub [Concomitant]
     Route: 061

REACTIONS (2)
  - Inability to afford medication [Unknown]
  - Drug ineffective [Unknown]
